FAERS Safety Report 19503755 (Version 8)
Quarter: 2023Q2

REPORT INFORMATION
  Report Type: Spontaneous
  Country: US (occurrence: US)
  Receive Date: 20210707
  Receipt Date: 20230411
  Transmission Date: 20230721
  Serious: Yes (Hospitalization, Other)
  Sender: FDA-Public Use
  Company Number: US-PFIZER INC-2021388809

PATIENT
  Age: 66 Year
  Sex: Female
  Weight: 97.52 kg

DRUGS (9)
  1. IBRANCE [Suspect]
     Active Substance: PALBOCICLIB
     Indication: Breast cancer metastatic
     Dosage: UNK
     Dates: start: 20180301
  2. IBRANCE [Suspect]
     Active Substance: PALBOCICLIB
     Dosage: UNK
     Dates: start: 20180329
  3. IBRANCE [Suspect]
     Active Substance: PALBOCICLIB
     Dosage: UNK
     Dates: start: 20190502
  4. IBRANCE [Suspect]
     Active Substance: PALBOCICLIB
     Dosage: UNK
     Dates: start: 20200901
  5. IBRANCE [Suspect]
     Active Substance: PALBOCICLIB
     Dosage: UNK
     Dates: start: 20210101
  6. IBRANCE [Suspect]
     Active Substance: PALBOCICLIB
     Dosage: 75 MG, CYCLIC (TWO WEEKS ON, TWO WEEKS OFF)
     Route: 048
  7. CYCLOSPORINE [Concomitant]
     Active Substance: CYCLOSPORINE
     Dosage: 50 MG, 2X/DAY
  8. SIROLIMUS [Concomitant]
     Active Substance: SIROLIMUS
     Indication: Renal transplant
     Dosage: 1 MG, DAILY
     Dates: start: 202203
  9. PREDNISONE [Concomitant]
     Active Substance: PREDNISONE
     Indication: Renal transplant
     Dosage: 2.5 MG, 1X/DAY
     Dates: start: 201701

REACTIONS (38)
  - Blood pressure decreased [Unknown]
  - Neuropathy peripheral [Unknown]
  - Fracture [Unknown]
  - Dry eye [Not Recovered/Not Resolved]
  - Muscle spasms [Unknown]
  - Off label use [Unknown]
  - Product use issue [Unknown]
  - Product dose omission issue [Unknown]
  - Memory impairment [Unknown]
  - Fatigue [Unknown]
  - Blood albumin decreased [Unknown]
  - Platelet count decreased [Not Recovered/Not Resolved]
  - Haemoglobin decreased [Not Recovered/Not Resolved]
  - Diarrhoea [Unknown]
  - Pain [Not Recovered/Not Resolved]
  - Abdominal distension [Not Recovered/Not Resolved]
  - Vomiting [Unknown]
  - Vision blurred [Not Recovered/Not Resolved]
  - Back pain [Not Recovered/Not Resolved]
  - Myalgia [Not Recovered/Not Resolved]
  - Muscle atrophy [Not Recovered/Not Resolved]
  - Lymphoedema [Not Recovered/Not Resolved]
  - Skin ulcer [Not Recovered/Not Resolved]
  - Alopecia [Not Recovered/Not Resolved]
  - Osteopenia [Not Recovered/Not Resolved]
  - Red blood cell count decreased [Not Recovered/Not Resolved]
  - Bronchitis [Not Recovered/Not Resolved]
  - Paraesthesia [Not Recovered/Not Resolved]
  - Discomfort [Unknown]
  - Dehydration [Unknown]
  - Plantar erythema [Unknown]
  - Pain in extremity [Unknown]
  - Drug intolerance [Unknown]
  - Visual impairment [Unknown]
  - Pain [Unknown]
  - Muscle spasms [Unknown]
  - Gait inability [Unknown]
  - Inflammation [Unknown]

NARRATIVE: CASE EVENT DATE: 20220901
